FAERS Safety Report 5081651-0 (Version None)
Quarter: 2006Q3

REPORT INFORMATION
  Report Type: 
  Country: None (occurrence: None)
  Receive Date: 20060811
  Receipt Date: 20060802
  Transmission Date: 20061208
  Serious: Yes (Life-Threatening)
  Sender: FDA-Public Use
  Company Number: 2006-08-0051

PATIENT
  Age: 45 Year
  Sex: Male

DRUGS (4)
  1. REBETOL [Suspect]
     Indication: HEPATITIS CHRONIC ACTIVE
     Dosage: 800 MG QD ORAL
     Route: 048
     Dates: start: 20060112, end: 20060119
  2. PEGASYS [Suspect]
     Indication: HEPATITIS CHRONIC ACTIVE
     Dosage: 180 MCG QW SUBCUTANEOUS
     Route: 058
     Dates: start: 20060112, end: 20060119
  3. COMBIVIR [Concomitant]
  4. SUSTIVA [Concomitant]

REACTIONS (2)
  - ACUTE CORONARY SYNDROME [None]
  - CORONARY ARTERY DISEASE [None]
